FAERS Safety Report 5958618-0 (Version None)
Quarter: 2008Q4

REPORT INFORMATION
  Report Type: 
  Country: None (occurrence: None)
  Receive Date: 20081110
  Receipt Date: 20081012
  Transmission Date: 20090506
  Serious: Yes (Death, Other)
  Sender: FDA-Public Use
  Company Number: CHPA2008US17975

PATIENT
  Age: 31 Year
  Sex: Male

DRUGS (2)
  1. ACETYLSALICYLIC ACID SRT [Suspect]
  2. PHENOTHIAZINE (PHENOTHIAZIDE) [Suspect]

REACTIONS (13)
  - AGITATION [None]
  - BLOOD PRESSURE INCREASED [None]
  - CARDIAC ARREST [None]
  - COMPLETED SUICIDE [None]
  - CONVULSION [None]
  - ENDOTRACHEAL INTUBATION [None]
  - HEART RATE INCREASED [None]
  - HYPERHIDROSIS [None]
  - HYPERTHERMIA [None]
  - INCORRECT DOSE ADMINISTERED [None]
  - NAUSEA [None]
  - TACHYPNOEA [None]
  - VOMITING [None]
